FAERS Safety Report 4587923-8 (Version None)
Quarter: 2005Q1

REPORT INFORMATION
  Report Type: 
  Country: None (occurrence: None)
  Receive Date: 20050215
  Receipt Date: 20050128
  Transmission Date: 20050727
  Serious: Yes (Hospitalization)
  Sender: FDA-Public Use
  Company Number: 2004197049FR

PATIENT
  Age: 81 Year
  Sex: Male
  Weight: 70 kg

DRUGS (9)
  1. CELEBREX [Suspect]
     Indication: RHEUMATOID ARTHRITIS
  2. ANTIHYPERTENSIVES (ANTIHYPERTENSIVES) [Concomitant]
  3. METHOTREXATE [Concomitant]
  4. PREDNISONE [Concomitant]
  5. BEZAFIBRATE (BEZAFIBRATE) [Concomitant]
  6. OMEPRAZOLE [Concomitant]
  7. AMIODARONE HCL [Concomitant]
  8. CLOPIDOGREL BISULFATE [Concomitant]
  9. FOLIC ACID [Concomitant]

REACTIONS (2)
  - APPENDICITIS [None]
  - COLITIS ISCHAEMIC [None]
